FAERS Safety Report 7292907-5 (Version None)
Quarter: 2011Q1

REPORT INFORMATION
  Report Type: 
  Country: None (occurrence: None)
  Receive Date: 20110209
  Receipt Date: 20110209
  Transmission Date: 20110831
  Serious: Yes (Other)
  Sender: FDA-Public Use
  Company Number: None

PATIENT

DRUGS (1)
  1. CEPHALEXIN [Suspect]
     Indication: INFECTION PROPHYLAXIS
     Dosage: 1 CAPSULE 4T TIMES A DAY PO
     Route: 048
     Dates: start: 20110201, end: 20110207

REACTIONS (8)
  - MOUTH ULCERATION [None]
  - INFLAMMATION [None]
  - ANORECTAL DISCOMFORT [None]
  - CHEILITIS [None]
  - STOMATITIS [None]
  - DIARRHOEA [None]
  - ERYTHEMA [None]
  - ORAL PAIN [None]
